FAERS Safety Report 13845295 (Version 1)
Quarter: 2017Q3

REPORT INFORMATION
  Report Type: Spontaneous
  Country: GB (occurrence: GB)
  Receive Date: 20170808
  Receipt Date: 20170808
  Transmission Date: 20171127
  Serious: Yes (Other)
  Sender: FDA-Public Use
  Company Number: GB-PFIZER INC-2017339665

PATIENT
  Age: 67 Year
  Sex: Female

DRUGS (1)
  1. TAZOCIN [Suspect]
     Active Substance: PIPERACILLIN SODIUM\TAZOBACTAM SODIUM
     Dosage: 4.5 G, UNK
     Route: 042
     Dates: start: 20170314

REACTIONS (3)
  - Unresponsive to stimuli [Unknown]
  - Documented hypersensitivity to administered product [Unknown]
  - Hypopnoea [Unknown]

NARRATIVE: CASE EVENT DATE: 20170314
